FAERS Safety Report 5060456-0 (Version None)
Quarter: 2006Q3

REPORT INFORMATION
  Report Type: 
  Country: None (occurrence: None)
  Receive Date: 20060720
  Receipt Date: 20060713
  Transmission Date: 20061208
  Serious: Yes (Hospitalization)
  Sender: FDA-Public Use
  Company Number: 2006-02909

PATIENT
  Age: 30 Year
  Sex: Female

DRUGS (2)
  1. ACETAMINOPHEN AND HYDROCODONE BITARTRATE [Suspect]
     Indication: ANALGESIC EFFECT
  2. SOMA [Concomitant]

REACTIONS (1)
  - PANCREATITIS [None]
